FAERS Safety Report 5803452-5 (Version None)
Quarter: 2008Q3

REPORT INFORMATION
  Report Type: 
  Country: None (occurrence: None)
  Receive Date: 20080708
  Receipt Date: 20080626
  Transmission Date: 20090109
  Serious: Yes (Hospitalization)
  Sender: FDA-Public Use
  Company Number: FR-WYE-H04825808

PATIENT
  Sex: Male

DRUGS (25)
  1. CORDARONE [Suspect]
     Dosage: 150 MG (FREQUENCY UNSPECIFIED)
     Route: 042
     Dates: start: 20080404, end: 20080420
  2. ERYTHROMYCIN ETHYLSUCCINATE [Interacting]
     Route: 042
     Dates: start: 20080417, end: 20080424
  3. TRIFLUCAN [Interacting]
     Dosage: 2 MG (FREQUENCY UNSPECIFIED)
     Route: 042
     Dates: start: 20080415, end: 20080417
  4. CIFLOX [Concomitant]
     Dosage: UNSPECIFIED
     Route: 042
     Dates: start: 20080410, end: 20080425
  5. VANCOMYCIN [Concomitant]
     Route: 042
     Dates: start: 20080417, end: 20080425
  6. TAVANIC [Concomitant]
     Dosage: UNSPECIFIED
     Route: 042
     Dates: start: 20080404, end: 20080410
  7. NOREPINEPHRINE [Concomitant]
     Dosage: UNSPECIFIED
     Dates: start: 20080401
  8. XYLOCAINE [Concomitant]
     Dosage: UNSPECIFIED
     Dates: start: 20080401
  9. HEPARIN [Concomitant]
     Dosage: UNSPECIFIED
     Dates: start: 20080401
  10. ELISOR [Concomitant]
     Dosage: UNSPECIFIED
     Route: 048
     Dates: start: 20080401, end: 20080414
  11. LASIX [Concomitant]
     Dosage: UNSPECIFIED
     Dates: start: 20080401
  12. PLAVIX [Concomitant]
     Dosage: UNSPECIFIED
     Route: 048
     Dates: start: 20080401
  13. KARDEGIC [Concomitant]
     Dosage: UNSPECIFIED
     Dates: start: 20080401
  14. OGAST [Concomitant]
     Dosage: UNSPECIFIED
     Route: 048
     Dates: start: 20080401
  15. MIDAZOLAM HCL [Concomitant]
     Dosage: UNSPECIFIED
     Dates: start: 20080401
  16. MORPHINE [Concomitant]
  17. NIMBEX [Concomitant]
     Dosage: UNSPECIFIED
     Route: 042
     Dates: start: 20080401
  18. ACETAMINOPHEN [Concomitant]
     Dosage: UNSPECIFIED
     Route: 042
     Dates: start: 20080401
  19. UMULINE [Concomitant]
     Dosage: UNSPECIFIED
     Dates: start: 20080401
  20. LEVOPHED [Concomitant]
     Dosage: UNSPECIFIED
     Dates: start: 20080401
  21. ROCEPHIN [Concomitant]
     Dosage: UNSPECIFIED
     Route: 042
  22. FLAGYL [Concomitant]
     Dosage: UNSPECIFIED
     Dates: start: 20080401
  23. TAZOCILLINE [Concomitant]
     Dosage: UNSPECIFIED
     Route: 042
     Dates: start: 20080401
  24. CLAVENTIN [Concomitant]
     Dosage: UNSPECIFIED
     Route: 042
     Dates: start: 20080401
  25. TAHOR [Interacting]
     Indication: HYPERCHOLESTEROLAEMIA
     Route: 048
     Dates: start: 20080415, end: 20080423

REACTIONS (3)
  - DRUG INTERACTION [None]
  - RENAL FAILURE ACUTE [None]
  - RHABDOMYOLYSIS [None]
